FAERS Safety Report 25314229 (Version 3)
Quarter: 2025Q2

REPORT INFORMATION
  Report Type: Report from Study
  Country: US (occurrence: US)
  Receive Date: 20250514
  Receipt Date: 20250612
  Transmission Date: 20250716
  Serious: Yes (Hospitalization, Other)
  Sender: EMD SERONO INC
  Company Number: US-Merck Healthcare KGaA-2025023138

PATIENT
  Sex: Male

DRUGS (2)
  1. MAVENCLAD [Suspect]
     Active Substance: CLADRIBINE
     Indication: Multiple sclerosis
     Dates: start: 20240702, end: 20240706
  2. MAVENCLAD [Suspect]
     Active Substance: CLADRIBINE
     Dates: start: 20240729, end: 20240802

REACTIONS (6)
  - Urinary tract infection [Unknown]
  - Sepsis [Unknown]
  - White blood cell count decreased [Unknown]
  - Multiple sclerosis [Unknown]
  - Malaise [Unknown]
  - Burning sensation [Unknown]
